FAERS Safety Report 8416230-8 (Version None)
Quarter: 2012Q2

REPORT INFORMATION
  Report Type: 
  Country: None (occurrence: None)
  Receive Date: 20120530
  Receipt Date: 20120521
  Transmission Date: 20120825
  Serious: Yes (Death, Hospitalization, Other)
  Sender: FDA-Public Use
  Company Number: AUR-APL-2012-02399

PATIENT
  Age: 43 Year
  Sex: Male

DRUGS (9)
  1. TEICOPLANIN (TEICOPLANIN) [Suspect]
     Indication: PRODUCT USED FOR UNKNOWN INDICATION
  2. VORICONAZOLE [Suspect]
     Indication: PRODUCT USED FOR UNKNOWN INDICATION
  3. CLARITHROMYCIN [Suspect]
     Indication: MYCOBACTERIUM FORTUITUM INFECTION
     Dosage: 1000 MG (500 MG, 2 IN 1 D)
  4. PREDNISOLONE [Suspect]
     Indication: IMMUNOSUPPRESSION
     Dosage: 60 MG
  5. OSELTAMIVIR PHOSPHATE [Suspect]
     Indication: PRODUCT USED FOR UNKNOWN INDICATION
  6. CYCLOPHOSPHAMIDE [Suspect]
     Indication: IMMUNOSUPPRESSION
     Dosage: 100 MG (100 MG, 1 IN 1 D), ORAL
     Route: 048
  7. AMPHOTERICIN B [Suspect]
     Indication: ASPERGILLOSIS
  8. CIPROFLOXACIN [Suspect]
     Indication: MYCOBACTERIUM FORTUITUM INFECTION
     Dosage: 1000 MG (500 MG, 2 IN 1 D)
  9. MEROPENEM [Suspect]
     Indication: PRODUCT USED FOR UNKNOWN INDICATION

REACTIONS (12)
  - CARDIO-RESPIRATORY ARREST [None]
  - HALLUCINATION, VISUAL [None]
  - LIVER INJURY [None]
  - DEVICE RELATED INFECTION [None]
  - CARDIAC FAILURE [None]
  - HAEMOPTYSIS [None]
  - MYCOBACTERIUM FORTUITUM INFECTION [None]
  - NEUTROPENIC SEPSIS [None]
  - H1N1 INFLUENZA [None]
  - BRONCHOPULMONARY ASPERGILLOSIS [None]
  - RESPIRATORY FAILURE [None]
  - RENAL FAILURE [None]
